FAERS Safety Report 5526877-4 (Version None)
Quarter: 2007Q4

REPORT INFORMATION
  Report Type: 
  Country: None (occurrence: None)
  Receive Date: 20071127
  Receipt Date: 20071115
  Transmission Date: 20080405
  Serious: Yes (Death, Other)
  Sender: FDA-Public Use
  Company Number: JP-PFIZER INC-2007059905

PATIENT
  Sex: Male

DRUGS (11)
  1. LIPITOR [Suspect]
     Indication: HYPERLIPIDAEMIA
     Dosage: DAILY DOSE:10MG
     Route: 048
     Dates: start: 20070517, end: 20070616
  2. FUNGIZONE [Suspect]
     Route: 048
  3. BACTRIM [Suspect]
     Route: 048
     Dates: start: 20050101, end: 20070628
  4. PREDNISOLONE [Concomitant]
     Route: 048
     Dates: start: 20050101, end: 20070628
  5. GASTER [Concomitant]
     Route: 048
     Dates: start: 20050101, end: 20070628
  6. ENDOXAN [Concomitant]
     Route: 048
     Dates: start: 20050101, end: 20070628
  7. CODEINE SUL TAB [Concomitant]
     Dosage: TEXT:3 DOSAGE FORM
     Route: 048
     Dates: start: 20050101, end: 20070628
  8. AMLODIN [Concomitant]
     Route: 048
     Dates: start: 20050101, end: 20070628
  9. HARNAL [Concomitant]
     Route: 048
     Dates: start: 20050101, end: 20070628
  10. MAGNESIUM OXIDE [Concomitant]
     Route: 048
     Dates: start: 20050101, end: 20070628
  11. ALOSENN [Concomitant]
     Route: 048
     Dates: start: 20050101, end: 20070628

REACTIONS (2)
  - HEPATIC FUNCTION ABNORMAL [None]
  - INTERSTITIAL LUNG DISEASE [None]
